FAERS Safety Report 7436891-X (Version None)
Quarter: 2011Q2

REPORT INFORMATION
  Report Type: 
  Country: None (occurrence: None)
  Receive Date: 20110426
  Receipt Date: 20101206
  Transmission Date: 20111010
  Serious: Yes (Hospitalization)
  Sender: FDA-Public Use
  Company Number: US-BAYER-201031133NA

PATIENT
  Age: 39 Year
  Sex: Female
  Weight: 81.633 kg

DRUGS (19)
  1. ANTIBIOTICS [Concomitant]
  2. NAPROXEN (ALEVE) [Concomitant]
  3. LEVAQUIN [Concomitant]
  4. ADVIL LIQUI-GELS [Concomitant]
  5. ALLEGRA [Concomitant]
     Dates: start: 20040101
  6. DIFLORASONE DIACETATE [Concomitant]
  7. SINGULAIR [Concomitant]
  8. ASTELIN [Concomitant]
  9. FLUCONAZOLE [Concomitant]
  10. ASTELIN [Concomitant]
     Dates: start: 20040101
  11. FLUTICASONE PROPIONATE [Concomitant]
  12. ASCORBIC ACID [Concomitant]
  13. LIPITOR [Concomitant]
     Dates: start: 20020101
  14. FLUTICASONE PROPIONATE [Concomitant]
     Dates: start: 20040101
  15. OMEPRAZOLE [Concomitant]
  16. BETAMETHASONE [Concomitant]
  17. LEXAPRO [Concomitant]
  18. LIPITOR [Concomitant]
  19. YAZ [Suspect]
     Indication: PRODUCT USED FOR UNKNOWN INDICATION
     Route: 048
     Dates: start: 20080701, end: 20100215

REACTIONS (5)
  - CHOLELITHIASIS [None]
  - NAUSEA [None]
  - GALLBLADDER CHOLESTEROLOSIS [None]
  - CHOLECYSTITIS CHRONIC [None]
  - ABDOMINAL PAIN UPPER [None]
